FAERS Safety Report 23566679 (Version 1)
Quarter: 2024Q1

REPORT INFORMATION
  Report Type: Spontaneous
  Country: US (occurrence: US)
  Receive Date: 20240226
  Receipt Date: 20240226
  Transmission Date: 20240410
  Serious: No
  Sender: FDA-Public Use
  Company Number: US-AMNEAL PHARMACEUTICALS-2023-AMRX-01103

PATIENT
  Age: 71 Year
  Sex: Female
  Weight: 72.109 kg

DRUGS (9)
  1. RYTARY [Suspect]
     Active Substance: CARBIDOPA\LEVODOPA
     Indication: Product used for unknown indication
     Dosage: 23.75MG-95MG, 3 CAPSULES, 6 /DAY
     Route: 048
  2. RYTARY [Suspect]
     Active Substance: CARBIDOPA\LEVODOPA
     Dosage: 23.75MG-95MG, 4 CAPSULES AT 4 AM, 8 AM, AND 12 PM. AND 3 CAPSULES AT 4 PM, 8 PM, AND MIDNIGHT
     Route: 048
     Dates: start: 20221114, end: 20221115
  3. RYTARY [Suspect]
     Active Substance: CARBIDOPA\LEVODOPA
     Dosage: 23.75MG-95MG, 3 CAPSULES, 6 /DAY
     Route: 048
     Dates: start: 20221115
  4. RYTARY [Suspect]
     Active Substance: CARBIDOPA\LEVODOPA
     Dosage: 23.75-95MG 4 CAPSULES AT 8AM, 12PM, 4PM, AND 8PM AND 3 CAPSULES AT 12AM AND 4AM
     Route: 048
  5. CLINDAMYCIN PALMITATE HYDROCHLORIDE [Suspect]
     Active Substance: CLINDAMYCIN PALMITATE HYDROCHLORIDE
     Indication: Product used for unknown indication
     Route: 065
  6. SERTRALINE HYDROCHLORIDE [Concomitant]
     Active Substance: SERTRALINE HYDROCHLORIDE
     Indication: Depression
     Dosage: 1 AND HALF TABLET, QD
  7. BUPROPION [Concomitant]
     Active Substance: BUPROPION
     Indication: Depression
     Dosage: 3 TABLET OD
  8. TOPIRAMATE [Concomitant]
     Active Substance: TOPIRAMATE
     Indication: Depression
     Dosage: 1 TABLER BD
  9. VITAMINS NOS [Concomitant]
     Active Substance: VITAMINS
     Indication: Product used for unknown indication

REACTIONS (6)
  - Dyspnoea [Recovered/Resolved]
  - Gambling disorder [Recovered/Resolved]
  - Dyskinesia [Recovered/Resolved]
  - Drug hypersensitivity [Unknown]
  - Drug effect less than expected [Unknown]
  - Product dose omission issue [Unknown]

NARRATIVE: CASE EVENT DATE: 20230101
